FAERS Safety Report 6237367-8 (Version None)
Quarter: 2009Q2

REPORT INFORMATION
  Report Type: 
  Country: None (occurrence: None)
  Receive Date: 20090619
  Receipt Date: 20090612
  Transmission Date: 20091009
  Serious: Yes (Other)
  Sender: FDA-Public Use
  Company Number: US-PFIZER INC-2008056427

PATIENT
  Sex: Female
  Weight: 70.3 kg

DRUGS (8)
  1. CHANTIX [Suspect]
     Indication: SMOKING CESSATION THERAPY
     Dates: start: 20080601
  2. AMBIEN [Concomitant]
  3. XANAX [Concomitant]
  4. NEURONTIN [Concomitant]
  5. ZETIA [Concomitant]
  6. NIACIN [Concomitant]
  7. ACETYLSALICYLIC ACID [Concomitant]
  8. VICODIN [Concomitant]

REACTIONS (1)
  - VISION BLURRED [None]
